FAERS Safety Report 15996860 (Version 1)
Quarter: 2019Q1

REPORT INFORMATION
  Report Type: Spontaneous
  Country: JP (occurrence: JP)
  Receive Date: 20190222
  Receipt Date: 20190222
  Transmission Date: 20190418
  Serious: Yes (Other)
  Sender: FDA-Public Use
  Company Number: JP-INCYTE CORPORATION-2019IN001393

PATIENT

DRUGS (4)
  1. JAKAVI [Suspect]
     Active Substance: RUXOLITINIB
     Dosage: 30 MG, QD
     Route: 048
  2. JAKAVI [Suspect]
     Active Substance: RUXOLITINIB
     Dosage: 40 MG, QD
     Route: 048
  3. JAKAVI [Suspect]
     Active Substance: RUXOLITINIB
     Dosage: 30 MG, QD
     Route: 048
  4. JAKAVI [Suspect]
     Active Substance: RUXOLITINIB
     Indication: MYELOFIBROSIS
     Dosage: UNK
     Route: 048

REACTIONS (5)
  - Cardiac failure [Unknown]
  - Platelet count decreased [Not Recovered/Not Resolved]
  - Full blood count decreased [Not Recovered/Not Resolved]
  - White blood cell count decreased [Not Recovered/Not Resolved]
  - Diarrhoea [Recovered/Resolved]
